FAERS Safety Report 6389284-0 (Version None)
Quarter: 2009Q4

REPORT INFORMATION
  Report Type: 
  Country: None (occurrence: None)
  Receive Date: 20091006
  Receipt Date: 20090929
  Transmission Date: 20100525
  Serious: Yes (Life-Threatening, Hospitalization, Other)
  Sender: FDA-Public Use
  Company Number: PHEH2009US11707

PATIENT
  Sex: Female
  Weight: 90.72 kg

DRUGS (8)
  1. TRILEPTAL [Suspect]
     Indication: BIPOLAR II DISORDER
     Dosage: 1200 MG, BID
     Route: 048
     Dates: start: 20081108, end: 20090922
  2. TRILEPTAL [Suspect]
     Dosage: 600 MG, BID
     Route: 048
     Dates: start: 20090922
  3. PRINZIDE [Suspect]
     Indication: HYPERTENSION
     Dosage: 20 MG/12.5 MG, DAILY
     Route: 048
     Dates: end: 20090918
  4. ALCOHOL [Suspect]
  5. EFFEXOR XR [Concomitant]
     Indication: ANXIETY
     Dosage: 75 MG, BID
     Route: 048
     Dates: start: 20081108
  6. VALIUM [Concomitant]
     Indication: PANIC DISORDER
     Dosage: 10 MG, QID, PRN
     Route: 048
     Dates: start: 20081108
  7. ALLEGRA D 24 HOUR [Concomitant]
     Dosage: UNK, UNK
  8. LISINOPRIL [Concomitant]
     Indication: HYPERTENSION
     Dosage: 20 MG, QD
     Dates: start: 20090921

REACTIONS (15)
  - ALCOHOL POISONING [None]
  - ATAXIA [None]
  - ATELECTASIS [None]
  - BLOOD THYROID STIMULATING HORMONE ABNORMAL [None]
  - FALL [None]
  - HYPONATRAEMIA [None]
  - HYPOVOLAEMIA [None]
  - IATROGENIC INJURY [None]
  - JOINT INJURY [None]
  - LIMB INJURY [None]
  - LUNG DISORDER [None]
  - MALAISE [None]
  - SYNCOPE [None]
  - THYROXINE FREE DECREASED [None]
  - UNRESPONSIVE TO STIMULI [None]
